FAERS Safety Report 4796302-X (Version None)
Quarter: 2005Q4

REPORT INFORMATION
  Report Type: 
  Country: None (occurrence: None)
  Receive Date: 20051007
  Receipt Date: 20050921
  Transmission Date: 20060501
  Serious: Yes (Death)
  Sender: FDA-Public Use
  Company Number: 2005S1009366

PATIENT
  Age: 49 Year
  Sex: Male

DRUGS (2)
  1. CLOZAPINE [Suspect]
     Dosage: 400 MG;HS;PO
     Route: 048
     Dates: start: 20031001, end: 20050801
  2. PROPRANOLOL [Concomitant]

REACTIONS (1)
  - DEATH [None]
